FAERS Safety Report 11219122 (Version 1)
Quarter: 2015Q2

REPORT INFORMATION
  Report Type: Report from Study
  Country: JP (occurrence: JP)
  Receive Date: 20150625
  Receipt Date: 20150625
  Transmission Date: 20150821
  Serious: Yes (Life-Threatening, Hospitalization, Other)
  Sender: FDA-Public Use
  Company Number: JP-ASTRAZENECA-2015SE62235

PATIENT
  Age: 22830 Day
  Sex: Male
  Weight: 66 kg

DRUGS (23)
  1. LOTRIGA [Concomitant]
     Active Substance: OMEGA-3-ACID ETHYL ESTERS
  2. AMARYL [Concomitant]
     Active Substance: GLIMEPIRIDE
     Dates: end: 20141031
  3. ONGLYZA [Suspect]
     Active Substance: SAXAGLIPTIN HYDROCHLORIDE
     Indication: TYPE 2 DIABETES MELLITUS
     Route: 048
     Dates: start: 20131018, end: 20141030
  4. AMLODIN [Concomitant]
     Active Substance: AMLODIPINE BESYLATE
  5. NEXIUM [Concomitant]
     Active Substance: ESOMEPRAZOLE MAGNESIUM
  6. MAGNESIUM OXIDE. [Concomitant]
     Active Substance: MAGNESIUM OXIDE
     Route: 048
  7. ONON [Concomitant]
     Active Substance: PRANLUKAST
  8. SONIAS [Concomitant]
     Active Substance: GLIMEPIRIDE\PIOGLITAZONE HYDROCHLORIDE
     Dates: end: 20141031
  9. IFENPRODIL TARTRATE [Concomitant]
     Active Substance: IFENPRODIL TARTRATE
     Route: 048
  10. GASMOTIN [Concomitant]
     Active Substance: MOSAPRIDE CITRATE
  11. VITAMINS NOS [Concomitant]
     Active Substance: VITAMINS
  12. GENNAX [Concomitant]
  13. ASTOMIN [Concomitant]
     Active Substance: DIMEMORFAN
  14. PLAVIX [Concomitant]
     Active Substance: CLOPIDOGREL BISULFATE
  15. TRICOR [Concomitant]
     Active Substance: FENOFIBRATE
  16. LIPACREON [Concomitant]
     Active Substance: PANCRELIPASE
  17. AZILVA [Concomitant]
     Active Substance: AZILSARTAN KAMEDOXOMIL
  18. LIPITOR [Concomitant]
     Active Substance: ATORVASTATIN CALCIUM
  19. ALESION [Concomitant]
     Active Substance: EPINASTINE HYDROCHLORIDE
  20. CELECOX [Concomitant]
     Active Substance: CELECOXIB
  21. KINEDAK [Concomitant]
     Active Substance: EPALRESTAT
  22. MUCOSOLVAN L [Concomitant]
     Active Substance: AMBROXOL HYDROCHLORIDE
  23. FRANDOL S [Concomitant]
     Active Substance: ISOSORBIDE DINITRATE

REACTIONS (1)
  - Cerebral infarction [Unknown]

NARRATIVE: CASE EVENT DATE: 20141030
